FAERS Safety Report 7449250-0 (Version None)
Quarter: 2011Q2

REPORT INFORMATION
  Report Type: 
  Country: None (occurrence: None)
  Receive Date: 20110502
  Receipt Date: 20110329
  Transmission Date: 20111010
  Serious: No
  Sender: FDA-Public Use
  Company Number: US-BAYER-2011-028822

PATIENT

DRUGS (3)
  1. SODIUM BICARBONATE [Suspect]
     Indication: ANALGESIC THERAPY
  2. SODIUM BICARBONATE [Suspect]
     Indication: ANALGESIC THERAPY
     Route: 048
  3. ALEVE (CAPLET) [Suspect]
     Indication: ANALGESIC THERAPY
     Route: 048

REACTIONS (3)
  - OVERDOSE [None]
  - ABDOMINAL PAIN UPPER [None]
  - PAIN [None]
